FAERS Safety Report 10663764 (Version 3)
Quarter: 2015Q1

REPORT INFORMATION
  Report Type: Spontaneous
  Country: BE (occurrence: BE)
  Receive Date: 20141219
  Receipt Date: 20150204
  Transmission Date: 20150720
  Serious: Yes (Other)
  Sender: FDA-Public Use
  Company Number: BE-BAYER-2013-149656

PATIENT
  Age: 28 Year
  Sex: Female

DRUGS (2)
  1. MIRENA [Suspect]
     Active Substance: LEVONORGESTREL
     Dosage: 20 MCG/24HR, CONT
     Route: 015
     Dates: start: 20130603, end: 20140209
  2. MICROGYNON 30 [Suspect]
     Active Substance: ETHINYL ESTRADIOL\LEVONORGESTREL ACETATE
     Dosage: UNK
     Dates: start: 201404

REACTIONS (8)
  - Haemorrhage in pregnancy [Recovered/Resolved]
  - Premature separation of placenta [None]
  - Drug ineffective [None]
  - Pregnancy with contraceptive device [None]
  - Pain [None]
  - Haemorrhage in pregnancy [None]
  - Pregnancy on oral contraceptive [None]
  - Medication error [None]

NARRATIVE: CASE EVENT DATE: 20130603
